FAERS Safety Report 16688894 (Version 1)
Quarter: 2019Q3

REPORT INFORMATION
  Report Type: Spontaneous
  Country: IN (occurrence: IN)
  Receive Date: 20190809
  Receipt Date: 20190809
  Transmission Date: 20191004
  Serious: Yes (Other)
  Sender: FDA-Public Use
  Company Number: IN-HARRIS PHARMACEUTICAL-2019HAR00017

PATIENT
  Age: 55 Year
  Sex: Male

DRUGS (1)
  1. FLUCONAZOLE. [Suspect]
     Active Substance: FLUCONAZOLE
     Indication: BODY TINEA
     Dosage: 150 MG, 1X/WEEK
     Route: 048

REACTIONS (1)
  - Dermatitis bullous [Recovering/Resolving]
